FAERS Safety Report 9160757 (Version 1)
Quarter: 2013Q1

REPORT INFORMATION
  Report Type: Spontaneous
  Country: DK (occurrence: None)
  Receive Date: 20130219
  Receipt Date: 20130219
  Transmission Date: 20140127
  Serious: Yes (Other)
  Sender: FDA-Public Use
  Company Number: 2013MA001174

PATIENT
  Age: 26 Year
  Sex: Female

DRUGS (1)
  1. ALPRAZOLAM TABLETS USP, 2 MG (PUREPAC) (ALPRAZOLAM) [Suspect]
     Indication: PANIC ATTACK
     Route: 048
     Dates: start: 20120530, end: 20120607

REACTIONS (2)
  - Lumbosacral plexus injury [None]
  - Vertigo [None]
